FAERS Safety Report 9319180 (Version 1)
Quarter: 2013Q2

REPORT INFORMATION
  Report Type: Spontaneous
  Country: US (occurrence: US)
  Receive Date: 20130530
  Receipt Date: 20130530
  Transmission Date: 20140414
  Serious: No
  Sender: FDA-Public Use
  Company Number: US-NOVEN-13US006103

PATIENT
  Age: 11 Year
  Sex: Male

DRUGS (2)
  1. DAYTRANA [Suspect]
     Indication: PRODUCT USED FOR UNKNOWN INDICATION
     Dosage: 10 MG, UNK
     Route: 062
  2. MONTELUKAST [Concomitant]
     Dosage: 5 MG, UNK

REACTIONS (2)
  - Incorrect drug administration duration [Recovered/Resolved]
  - No adverse event [None]
